FAERS Safety Report 8191255-9 (Version None)
Quarter: 2012Q1

REPORT INFORMATION
  Report Type: 
  Country: None (occurrence: None)
  Receive Date: 20120307
  Receipt Date: 20120216
  Transmission Date: 20120608
  Serious: Yes (Death)
  Sender: FDA-Public Use
  Company Number: US-PFIZER INC-US-WYE-H02048208

PATIENT
  Age: 49 Year
  Sex: Female

DRUGS (8)
  1. PROPOXYPHENE HCL AND ACETAMINOPHEN [Suspect]
     Dosage: OVERDOSE (AMOUNT UNKNOWN)
     Route: 048
     Dates: start: 20060101
  2. MIRTAZAPINE [Suspect]
     Dosage: OVERDOSE (AMOUNT UNKNOWN)
     Route: 048
     Dates: start: 20060101
  3. METOPROLOL SUCCINATE [Suspect]
     Dosage: OVERDOSE (AMOUNT UNKNOWN)
     Route: 048
     Dates: start: 20060101
  4. CODEINE SULFATE [Suspect]
     Dosage: OVERDOSE (AMOUNT UNKNOWN)
     Route: 048
     Dates: start: 20060101
  5. OLANZAPINE [Suspect]
     Dosage: OVERDOSE (AMOUNT UNKNOWN)
     Route: 048
     Dates: start: 20060101
  6. EFFEXOR [Suspect]
     Dosage: OVERDOSE (AMOUNT UNKNOWN)
     Route: 048
     Dates: start: 20060101
  7. DIAZEPAM [Suspect]
     Dosage: OVERDOSE (AMOUNT UNKNOWN)
     Route: 048
     Dates: start: 20060101
  8. GABAPENTIN [Suspect]
     Dosage: OVERDOSE (AMOUNT UNKNOWN)
     Route: 048
     Dates: start: 20060101

REACTIONS (2)
  - DRUG ABUSE [None]
  - INTENTIONAL OVERDOSE [None]
